FAERS Safety Report 9877845 (Version 1)
Quarter: 2014Q1

REPORT INFORMATION
  Report Type: Spontaneous
  Country: GB (occurrence: GB)
  Receive Date: 20140206
  Receipt Date: 20140206
  Transmission Date: 20141002
  Serious: Yes (Other)
  Sender: FDA-Public Use
  Company Number: PHHY2014GB012211

PATIENT
  Age: 38 Year
  Sex: Female

DRUGS (5)
  1. CICLOSPORIN [Suspect]
     Indication: IMMUNOSUPPRESSION
  2. PREDNISOLONE [Suspect]
     Indication: IMMUNOSUPPRESSION
  3. METHYLDOPA [Suspect]
     Dosage: 125 MG, TID
  4. ISOPHANE INSULIN [Suspect]
     Dosage: 34 U/DAY
  5. ISOPHANE INSULIN [Suspect]
     Dosage: 38 U/DAY

REACTIONS (8)
  - Hypertension [Unknown]
  - Foetal distress syndrome [Unknown]
  - Premature labour [Unknown]
  - Drug ineffective [Unknown]
  - Blood creatinine increased [Unknown]
  - Proteinuria [Unknown]
  - Creatinine renal clearance decreased [Unknown]
  - Exposure during pregnancy [Unknown]
